FAERS Safety Report 18485671 (Version 1)
Quarter: 2020Q4

REPORT INFORMATION
  Report Type: Spontaneous
  Country: IT (occurrence: IT)
  Receive Date: 20201110
  Receipt Date: 20201110
  Transmission Date: 20210114
  Serious: Yes (Other)
  Sender: FDA-Public Use
  Company Number: IT-ASTRAZENECA-2020SF45068

PATIENT
  Age: 41 Year
  Sex: Female

DRUGS (2)
  1. LUCEN [Suspect]
     Active Substance: ESOMEPRAZOLE
     Dosage: DOSE AND FREQUENCY UNKNOWN
     Route: 065
  2. SUCRALFIN [Suspect]
     Active Substance: SUCRALFATE
     Dosage: DOSE AND FREQUENCY UNKNOWN
     Route: 065

REACTIONS (4)
  - Drug ineffective [Unknown]
  - Epigastric discomfort [Unknown]
  - Tachycardia [Unknown]
  - Dyspepsia [Unknown]

NARRATIVE: CASE EVENT DATE: 20200701
